FAERS Safety Report 5806664-X (Version None)
Quarter: 2008Q3

REPORT INFORMATION
  Report Type: 
  Country: None (occurrence: None)
  Receive Date: 20080710
  Receipt Date: 20080702
  Transmission Date: 20090109
  Serious: Yes (Life-Threatening)
  Sender: FDA-Public Use
  Company Number: GB-MERCK-0807GBR00015

PATIENT
  Age: 78 Year
  Sex: Female

DRUGS (13)
  1. ZETIA [Suspect]
     Indication: HYPERCHOLESTEROLAEMIA
     Route: 048
     Dates: start: 20060706
  2. ASPIRIN [Concomitant]
     Route: 048
  3. BENDROFLUMETHIAZIDE [Concomitant]
     Route: 048
  4. ACETAMINOPHEN AND CODEINE PHOSPHATE [Concomitant]
     Route: 065
  5. GLICLAZIDE [Concomitant]
     Route: 048
  6. HYDROCORTISONE [Concomitant]
     Route: 061
  7. IBUPROFEN [Concomitant]
     Route: 061
  8. LACTULOSE [Concomitant]
     Route: 065
  9. METOCLOPRAMIDE [Concomitant]
     Route: 048
  10. PIOGLITAZONE HYDROCHLORIDE [Concomitant]
     Route: 048
  11. RAMIPRIL [Concomitant]
     Route: 048
  12. ZOCOR [Concomitant]
     Route: 048
  13. HYDROCORTISONE AND NYSTATIN [Concomitant]
     Route: 061

REACTIONS (1)
  - ATRIOVENTRICULAR BLOCK COMPLETE [None]
